FAERS Safety Report 5350413-9 (Version None)
Quarter: 2007Q2

REPORT INFORMATION
  Report Type: 
  Country: None (occurrence: None)
  Receive Date: 20070605
  Receipt Date: 20070605
  Transmission Date: 20071010
  Serious: Yes (Hospitalization)
  Sender: FDA-Public Use
  Company Number: None

PATIENT
  Age: 60 Year
  Sex: Female
  Weight: 62.5964 kg

DRUGS (2)
  1. EPITOL [Suspect]
     Indication: HYPOCHLORAEMIA
     Dosage: 200 MG QID PO
     Route: 048
     Dates: start: 20070531, end: 20070602
  2. EPITOL [Suspect]
     Indication: HYPONATRAEMIA
     Dosage: 200 MG QID PO
     Route: 048
     Dates: start: 20070531, end: 20070602

REACTIONS (2)
  - GAIT DISTURBANCE [None]
  - VISION BLURRED [None]
